FAERS Safety Report 5145754-4 (Version None)
Quarter: 2006Q4

REPORT INFORMATION
  Report Type: 
  Country: None (occurrence: None)
  Receive Date: 20060915
  Receipt Date: 20060629
  Transmission Date: 20070319
  Serious: No
  Sender: FDA-Public Use
  Company Number: 2006RL000246

PATIENT
  Age: 56 Year
  Sex: Female
  Weight: 53.5244 kg

DRUGS (11)
  1. OMACOR [Suspect]
     Indication: MEDICAL DIET
     Dosage: SEE IMAGE
     Route: 048
     Dates: start: 20060601, end: 20060601
  2. OMACOR [Suspect]
     Indication: MEDICAL DIET
     Dosage: SEE IMAGE
     Route: 048
     Dates: start: 20060621, end: 20060601
  3. VITAMIN CAP [Concomitant]
  4. ASCORBIC ACID [Concomitant]
  5. IRON [Concomitant]
  6. GARLIC [Concomitant]
  7. CALCIUM [Concomitant]
  8. COENZYME Q10 [Concomitant]
  9. PROCARDIA [Concomitant]
  10. FOSAMAX [Concomitant]
  11. VITAMIN B-12 [Concomitant]

REACTIONS (1)
  - ABDOMINAL PAIN UPPER [None]
